FAERS Safety Report 6126495-3 (Version None)
Quarter: 2009Q1

REPORT INFORMATION
  Report Type: 
  Country: None (occurrence: None)
  Receive Date: 20090320
  Receipt Date: 20090310
  Transmission Date: 20090719
  Serious: Yes (Life-Threatening, Hospitalization)
  Sender: FDA-Public Use
  Company Number: GB-PFIZER INC-2009182219

PATIENT

DRUGS (8)
  1. ZYVOX [Suspect]
     Indication: STAPHYLOCOCCAL INFECTION
     Route: 048
     Dates: start: 20090115, end: 20090129
  2. ACETYLSALICYLIC ACID [Concomitant]
     Route: 048
  3. BISOPROLOL [Concomitant]
     Route: 048
  4. CLOPIDOGREL [Concomitant]
     Route: 048
  5. DERMOVATE [Concomitant]
     Route: 061
  6. PARAFFIN, LIQUID [Concomitant]
     Route: 061
  7. PARAFFIN SOFT [Concomitant]
     Route: 061
  8. PREDNISOLONE [Concomitant]
     Route: 048

REACTIONS (1)
  - TOXIC EPIDERMAL NECROLYSIS [None]
